FAERS Safety Report 5003637-4 (Version None)
Quarter: 2006Q2

REPORT INFORMATION
  Report Type: 
  Country: None (occurrence: None)
  Receive Date: 20060511
  Receipt Date: 20060503
  Transmission Date: 20061013
  Serious: Yes (Death, Hospitalization)
  Sender: FDA-Public Use
  Company Number: 2006-04-0529

PATIENT
  Age: 50 Year
  Sex: Female
  Weight: 70 kg

DRUGS (2)
  1. TEMODAL [Suspect]
     Indication: GLIOMA
     Dosage: 270 MG QDX5D ORAL
     Route: 048
     Dates: start: 20040911, end: 20050424
  2. VM-26 [Concomitant]

REACTIONS (1)
  - NEOPLASM PROGRESSION [None]
